FAERS Safety Report 18945510 (Version 1)
Quarter: 2021Q1

REPORT INFORMATION
  Report Type: Spontaneous
  Country: US (occurrence: US)
  Receive Date: 20210226
  Receipt Date: 20210226
  Transmission Date: 20210420
  Serious: No
  Sender: FDA-Public Use
  Company Number: US-BRISTOL-MYERS SQUIBB COMPANY-BMS-2021-018365

PATIENT
  Sex: Male
  Weight: 102.04 kg

DRUGS (1)
  1. ELIQUIS [Suspect]
     Active Substance: APIXABAN
     Indication: PULMONARY EMBOLISM
     Dosage: 5 MILLIGRAM, BID
     Route: 065

REACTIONS (7)
  - Pallor [Unknown]
  - Fatigue [Unknown]
  - Intentional product use issue [Unknown]
  - Abdominal pain [Unknown]
  - Confusional state [Unknown]
  - Headache [Unknown]
  - Dyspnoea [Unknown]
